FAERS Safety Report 21340183 (Version 2)
Quarter: 2022Q3

REPORT INFORMATION
  Report Type: Report from Study
  Country: EG (occurrence: EG)
  Receive Date: 20220916
  Receipt Date: 20220921
  Transmission Date: 20221026
  Serious: Yes (Hospitalization, Other)
  Sender: FDA-Public Use
  Company Number: EG-NOVARTISPH-NVSC2022EG207184

PATIENT
  Age: 60 Year
  Sex: Male

DRUGS (10)
  1. HYDROCHLOROTHIAZIDE\VALSARTAN [Suspect]
     Active Substance: HYDROCHLOROTHIAZIDE\VALSARTAN
     Indication: Hypertension
     Dosage: 1 DOSAGE FORM, QD
     Route: 048
     Dates: start: 2007
  2. PLAVIX [Concomitant]
     Active Substance: CLOPIDOGREL BISULFATE
     Indication: Anticoagulant therapy
     Dosage: 1 DOSAGE FORM, QD
     Route: 065
     Dates: start: 2013
  3. EZETIMIBE [Concomitant]
     Active Substance: EZETIMIBE
     Indication: Hypercholesterolaemia
     Dosage: 1 DOSAGE FORM, QD, (START DATE 9 MONTHS AGO)
     Route: 065
  4. CONTROLOC [Concomitant]
     Active Substance: PANTOPRAZOLE SODIUM
     Indication: Gastrointestinal disorder
     Dosage: 1 DOSAGE FORM, QD (START DATE 10 YEARS AGO)
     Route: 065
  5. TAMSULIN [Concomitant]
     Indication: Benign prostatic hyperplasia
     Dosage: 1 DOSAGE FORM, QD, (START DATE 5 YEARS AGO)
     Route: 065
  6. KETOPROFEN [Concomitant]
     Active Substance: KETOPROFEN
     Indication: Headache
     Dosage: 1 DOSAGE FORM, QD, (START DATE 5 YEARS AGO), (PATIENT IS INCONSISTENT)
     Route: 065
  7. KETOPROFEN [Concomitant]
     Active Substance: KETOPROFEN
     Indication: Migraine
  8. AMIGRAINE [Concomitant]
     Indication: Headache
     Dosage: 1 DOSAGE FORM, QD (START DATE 5 YEARS AGO), (PATIENT IS INCONSISTENT)
     Route: 065
  9. AMIGRAINE [Concomitant]
     Indication: Migraine
  10. AMLODIPINE [Concomitant]
     Active Substance: AMLODIPINE BESYLATE
     Indication: Product used for unknown indication
     Dosage: UNK, (2 MONTHS AGO)
     Route: 065

REACTIONS (6)
  - Blood pressure increased [Recovered/Resolved]
  - COVID-19 [Recovered/Resolved]
  - Blood creatine phosphokinase increased [Recovering/Resolving]
  - Decreased activity [Not Recovered/Not Resolved]
  - Fatigue [Not Recovered/Not Resolved]
  - Drug ineffective [Recovered/Resolved]

NARRATIVE: CASE EVENT DATE: 20210301
